FAERS Safety Report 5988410-2 (Version None)
Quarter: 2008Q4

REPORT INFORMATION
  Report Type: 
  Country: None (occurrence: None)
  Receive Date: 20081204
  Receipt Date: 20081120
  Transmission Date: 20090506
  Serious: Yes (Other)
  Sender: FDA-Public Use
  Company Number: 2008003018

PATIENT
  Age: 61 Year
  Sex: Male
  Weight: 58.9 kg

DRUGS (6)
  1. ERLOTINIB (ERLOTINIB (TABLET) (ERLOTINIB [Suspect]
     Indication: NON-SMALL CELL LUNG CANCER
     Dosage: 150 MG, QD), ORAL
     Route: 048
     Dates: start: 20080712, end: 20080721
  2. PURSENNID (SENNA LEAF) [Concomitant]
  3. LENDORM [Concomitant]
  4. ZOLPIDEM TARTRATE [Concomitant]
  5. TRAMAZOLINE HYDROCHLORIDE (TRAMAZOLINE HYDROCHLORIDE) [Concomitant]
  6. NAIXAN (NAPROXEN SODIUM) [Concomitant]

REACTIONS (2)
  - HYPONATRAEMIA [None]
  - INTERSTITIAL LUNG DISEASE [None]
